FAERS Safety Report 10066211 (Version 7)
Quarter: 2015Q4

REPORT INFORMATION
  Report Type: Report from Study
  Country: GB (occurrence: GB)
  Receive Date: 20140408
  Receipt Date: 20151118
  Transmission Date: 20160304
  Serious: Yes (Hospitalization, Other)
  Sender: FDA-Public Use
  Company Number: GB-BRISTOL-MYERS SQUIBB COMPANY-20354122

PATIENT
  Sex: Female

DRUGS (1)
  1. ABATACEPT [Suspect]
     Active Substance: ABATACEPT
     Indication: RHEUMATOID ARTHRITIS
     Dosage: 125 MG, QWK
     Route: 030
     Dates: start: 20130708

REACTIONS (5)
  - Tibia fracture [Unknown]
  - Lower respiratory tract infection [Unknown]
  - Drug dose omission [Unknown]
  - Fall [Unknown]
  - Joint dislocation [Unknown]
